FAERS Safety Report 4619088-8 (Version None)
Quarter: 2005Q1

REPORT INFORMATION
  Report Type: 
  Country: None (occurrence: None)
  Receive Date: 20050318
  Receipt Date: 20050318
  Transmission Date: 20050727
  Serious: Yes (Hospitalization)
  Sender: FDA-Public Use
  Company Number: None

PATIENT
  Sex: Male
  Weight: 87.9978 kg

DRUGS (1)
  1. PENICILLIN VK [Suspect]
     Indication: TOOTHACHE
     Dosage: PO
     Route: 048
     Dates: start: 20041207

REACTIONS (3)
  - DIZZINESS [None]
  - GENERALISED ERYTHEMA [None]
  - PRURITUS [None]
